FAERS Safety Report 18986199 (Version 1)
Quarter: 2021Q1

REPORT INFORMATION
  Report Type: Spontaneous
  Country: US (occurrence: US)
  Receive Date: 20210309
  Receipt Date: 20210309
  Transmission Date: 20210420
  Serious: Yes (Other)
  Sender: FDA-Public Use
  Company Number: US-HIKMA PHARMACEUTICALS USA INC.-US-H14001-21-53783

PATIENT
  Age: 77 Year
  Sex: Male

DRUGS (5)
  1. HYDROCHLOROTHIAZIDE. [Interacting]
     Active Substance: HYDROCHLOROTHIAZIDE
     Indication: PULMONARY HYPERTENSION
     Dosage: UNKNOWN
     Route: 065
  2. INSULIN [Concomitant]
     Active Substance: INSULIN NOS
     Indication: TYPE 2 DIABETES MELLITUS
     Dosage: BASAL/BOLUS
     Route: 065
  3. HYDROCHLOROTHIAZIDE, LISINOPRIL [Suspect]
     Active Substance: HYDROCHLOROTHIAZIDE\LISINOPRIL
     Indication: PULMONARY HYPERTENSION
     Dosage: UNKNOWN
     Route: 065
  4. FUROSEMIDE. [Concomitant]
     Active Substance: FUROSEMIDE
     Indication: PULMONARY HYPERTENSION
     Dosage: UNKNOWN
     Route: 065
  5. EMPAGLIFLOZIN [Interacting]
     Active Substance: EMPAGLIFLOZIN
     Indication: TYPE 2 DIABETES MELLITUS
     Dosage: UNKNOWN
     Route: 065

REACTIONS (3)
  - Drug interaction [Recovering/Resolving]
  - Renal impairment [Recovering/Resolving]
  - Hypovolaemia [Recovering/Resolving]
